FAERS Safety Report 25528901 (Version 2)
Quarter: 2025Q3

REPORT INFORMATION
  Report Type: Spontaneous
  Country: US (occurrence: US)
  Receive Date: 20250708
  Receipt Date: 20250916
  Transmission Date: 20251020
  Serious: Yes (Other)
  Sender: CSL BEHRING
  Company Number: US-BEH-2025212077

PATIENT
  Age: 59 Year
  Sex: Female
  Weight: 135.6 kg

DRUGS (2)
  1. HIZENTRA [Suspect]
     Active Substance: HUMAN IMMUNOGLOBULIN G
     Indication: Hypogammaglobulinaemia
     Dosage: 100 ML, QW
     Route: 058
     Dates: start: 202411
  2. HIZENTRA [Suspect]
     Active Substance: HUMAN IMMUNOGLOBULIN G
     Indication: Immunodeficiency
     Dosage: 20 G
     Route: 058
     Dates: start: 202411

REACTIONS (5)
  - Haemorrhage [Unknown]
  - Restless legs syndrome [Recovered/Resolved]
  - Weight decreased [Unknown]
  - Pruritus [Recovered/Resolved]
  - Weight decreased [Unknown]
